FAERS Safety Report 11914482 (Version 1)
Quarter: 2016Q1

REPORT INFORMATION
  Report Type: Spontaneous
  Country: DE (occurrence: DE)
  Receive Date: 20160113
  Receipt Date: 20160113
  Transmission Date: 20160526
  Serious: Yes (Life-Threatening)
  Sender: FDA-Public Use
  Company Number: DE-FRESENIUS KABI-FK201600120

PATIENT
  Age: 69 Year

DRUGS (3)
  1. ROCURONIUM [Suspect]
     Active Substance: ROCURONIUM BROMIDE
     Indication: HEPATECTOMY
     Route: 042
  2. MIVACURIUM CHLORIDE. [Suspect]
     Active Substance: MIVACURIUM CHLORIDE
     Indication: METASTASES TO LIVER
     Route: 065
  3. ATRACURIUM BESILATE [Suspect]
     Active Substance: ATRACURIUM BESYLATE
     Indication: HEPATECTOMY
     Route: 065

REACTIONS (1)
  - Anaphylactic reaction [Unknown]
